FAERS Safety Report 6719139-0 (Version None)
Quarter: 2010Q2

REPORT INFORMATION
  Report Type: 
  Country: None (occurrence: None)
  Receive Date: 20100510
  Receipt Date: 20100510
  Transmission Date: 20101027
  Serious: Yes (Life-Threatening, Hospitalization)
  Sender: FDA-Public Use
  Company Number: None

PATIENT
  Sex: Female
  Weight: 53.0709 kg

DRUGS (2)
  1. TEKTURNA [Suspect]
     Dates: start: 20091013, end: 20091015
  2. KEFLEX [Suspect]
     Indication: CYSTITIS

REACTIONS (12)
  - ALOPECIA [None]
  - CARDIAC VALVE DISEASE [None]
  - DIALYSIS [None]
  - DRUG ERUPTION [None]
  - DYSURIA [None]
  - ONYCHOMADESIS [None]
  - PRURITUS [None]
  - RASH GENERALISED [None]
  - RENAL DISORDER [None]
  - RENAL FAILURE [None]
  - SKIN EXFOLIATION [None]
  - TRICUSPID VALVE INCOMPETENCE [None]
